FAERS Safety Report 7585922-5 (Version None)
Quarter: 2011Q3

REPORT INFORMATION
  Report Type: 
  Country: None (occurrence: None)
  Receive Date: 20110701
  Receipt Date: 20110620
  Transmission Date: 20111222
  Serious: Yes (Hospitalization)
  Sender: FDA-Public Use
  Company Number: FI-SANOFI-AVENTIS-2011SA038902

PATIENT
  Age: 84 Year
  Sex: Female

DRUGS (4)
  1. APIDRA [Suspect]
     Route: 058
  2. LANTUS [Suspect]
     Dosage: 32 UNITS IN THE MORNING AND 20-22 UNITS IN THE EVENING
  3. SOLOSTAR [Suspect]
     Route: 058
  4. SOLOSTAR [Suspect]
     Dosage: 32 UNITS IN THE MORNING AND 20-22 UNITS IN THE EVENING
     Route: 058

REACTIONS (2)
  - WRONG DRUG ADMINISTERED [None]
  - HYPOGLYCAEMIA [None]
